FAERS Safety Report 8923851 (Version 2)
Quarter: 2012Q4

REPORT INFORMATION
  Report Type: Report from Study
  Country: CA (occurrence: CA)
  Receive Date: 20121126
  Receipt Date: 20121206
  Transmission Date: 20130627
  Serious: Yes (Other)
  Sender: FDA-Public Use
  Company Number: CA-ROCHE-1159242

PATIENT
  Sex: Female
  Weight: 49.94 kg

DRUGS (9)
  1. TOCILIZUMAB [Suspect]
     Indication: RHEUMATOID ARTHRITIS
     Route: 042
     Dates: start: 20120904
  2. MEDROL [Concomitant]
  3. MELOXICAM [Concomitant]
  4. ALLOPURINOL [Concomitant]
  5. ASPIRIN [Concomitant]
  6. TRAMACET [Concomitant]
     Route: 065
  7. SINGULAIR [Concomitant]
  8. CLONAZEPAM [Concomitant]
  9. NORTRIPTYLINE [Concomitant]

REACTIONS (4)
  - Tongue disorder [Recovered/Resolved]
  - Swelling [Recovered/Resolved]
  - Stomatitis [Not Recovered/Not Resolved]
  - Oral pain [Not Recovered/Not Resolved]
